FAERS Safety Report 25640302 (Version 3)
Quarter: 2025Q3

REPORT INFORMATION
  Report Type: Spontaneous
  Country: US (occurrence: US)
  Receive Date: 20250804
  Receipt Date: 20250903
  Transmission Date: 20251020
  Serious: No
  Sender: NEUROCRINE BIOSCIENCES
  Company Number: US-NEUROCRINE BIOSCIENCES INC.-2025NBI09760

PATIENT
  Age: 51 Year
  Sex: Female

DRUGS (6)
  1. INGREZZA [Suspect]
     Active Substance: VALBENAZINE DITOSYLATE
     Indication: Tardive dyskinesia
     Route: 048
     Dates: start: 20250703, end: 20250808
  2. BUPROPION [Concomitant]
     Active Substance: BUPROPION
     Indication: Depression
     Route: 048
     Dates: start: 20250304
  3. COCAINE [Concomitant]
     Active Substance: COCAINE
  4. REXULTI [Concomitant]
     Active Substance: BREXPIPRAZOLE
     Indication: Post-traumatic stress disorder
     Route: 048
     Dates: start: 20250724
  5. TOPIRAMATE [Concomitant]
     Active Substance: TOPIRAMATE
     Indication: Bipolar disorder
     Route: 048
     Dates: start: 20250724
  6. CHANTIX [Concomitant]
     Active Substance: VARENICLINE TARTRATE
     Indication: Nicotine dependence
     Route: 048
     Dates: start: 20250717

REACTIONS (2)
  - Arthralgia [Recovered/Resolved]
  - Treatment noncompliance [Unknown]

NARRATIVE: CASE EVENT DATE: 20250724
